FAERS Safety Report 14659788 (Version 3)
Quarter: 2018Q2

REPORT INFORMATION
  Report Type: Other
  Country: US (occurrence: US)
  Receive Date: 20180320
  Receipt Date: 20180424
  Transmission Date: 20180711
  Serious: Yes (Hospitalization)
  Sender: FDA-Public Use
  Company Number: US-INTERCEPT-PMOCA2018000386

PATIENT

DRUGS (21)
  1. PLAVIX [Suspect]
     Active Substance: CLOPIDOGREL BISULFATE
  2. IRON [Concomitant]
     Active Substance: IRON
     Dosage: UNK
  3. HUMALOG [Concomitant]
     Active Substance: INSULIN LISPRO
  4. CANASA [Concomitant]
     Active Substance: MESALAMINE
  5. FISH OIL [Concomitant]
     Active Substance: FISH OIL
  6. ACETAMINOPHEN. [Concomitant]
     Active Substance: ACETAMINOPHEN
  7. RANEXA [Concomitant]
     Active Substance: RANOLAZINE
  8. ASPIRIN                            /00002701/ [Suspect]
     Active Substance: ASPIRIN
  9. PANTOPRAZOLE [Concomitant]
     Active Substance: PANTOPRAZOLE
  10. URSODIOL. [Concomitant]
     Active Substance: URSODIOL
  11. FLUOXETINE [Concomitant]
     Active Substance: FLUOXETINE HYDROCHLORIDE
  12. PRAMIPEXOLE. [Concomitant]
     Active Substance: PRAMIPEXOLE
  13. NITROGLYCERIN. [Concomitant]
     Active Substance: NITROGLYCERIN
  14. OCALIVA [Suspect]
     Active Substance: OBETICHOLIC ACID
     Dosage: UNK
     Route: 048
  15. VITAMIN E                          /00110501/ [Concomitant]
     Active Substance: TOCOPHEROL
  16. VITAMIN D3 [Concomitant]
     Active Substance: CHOLECALCIFEROL
  17. OCALIVA [Suspect]
     Active Substance: OBETICHOLIC ACID
     Dosage: 5 MG, QW
     Route: 048
     Dates: start: 20180316
  18. ATORVASTATIN [Concomitant]
     Active Substance: ATORVASTATIN
  19. OCALIVA [Suspect]
     Active Substance: OBETICHOLIC ACID
     Indication: PRIMARY BILIARY CHOLANGITIS
     Dosage: 5 MG, QD
     Route: 048
     Dates: start: 20180220, end: 20180310
  20. METOPROLOL. [Concomitant]
     Active Substance: METOPROLOL
  21. CRANBERRY                          /01512301/ [Concomitant]
     Active Substance: CRANBERRY

REACTIONS (2)
  - Anaemia [Recovered/Resolved]
  - Gastric varices haemorrhage [Recovered/Resolved]

NARRATIVE: CASE EVENT DATE: 20180310
